FAERS Safety Report 7544114-6 (Version None)
Quarter: 2011Q2

REPORT INFORMATION
  Report Type: 
  Country: None (occurrence: None)
  Receive Date: 20110613
  Receipt Date: 20060125
  Transmission Date: 20111010
  Serious: Yes (Hospitalization, Other)
  Sender: FDA-Public Use
  Company Number: PHFR2003GB02812

PATIENT
  Sex: Male

DRUGS (3)
  1. CLOZAPINE [Suspect]
     Indication: PSYCHOTIC DISORDER
     Dosage: 325 MG
     Route: 048
     Dates: start: 20030626, end: 20030715
  2. CLOZAPINE [Suspect]
     Route: 048
     Dates: start: 20060113, end: 20060121
  3. CITALOPRAM HYDROBROMIDE [Concomitant]
     Indication: ANXIETY
     Dosage: 20 MG
     Route: 048
     Dates: start: 20020301

REACTIONS (8)
  - SEDATION [None]
  - CHEST PAIN [None]
  - DYSPNOEA [None]
  - ANGINA UNSTABLE [None]
  - HYPERTHERMIA [None]
  - LOWER RESPIRATORY TRACT INFECTION [None]
  - MYOCARDIAL INFARCTION [None]
  - CONSTIPATION [None]
